FAERS Safety Report 9252110 (Version 2)
Quarter: 2013Q2

REPORT INFORMATION
  Report Type: Spontaneous
  Country: JP (occurrence: JP)
  Receive Date: 20130424
  Receipt Date: 20130516
  Transmission Date: 20140414
  Serious: No
  Sender: FDA-Public Use
  Company Number: JP-SANOFI-AVENTIS-2013SA040710

PATIENT
  Age: 45 Year
  Sex: Female
  Weight: 52 kg

DRUGS (4)
  1. ALLEGRA [Suspect]
     Indication: RHINITIS ALLERGIC
     Route: 048
     Dates: start: 201302, end: 201303
  2. DISOPYRAMIDE [Concomitant]
  3. PATANOL [Concomitant]
     Route: 047
  4. FERROMIA [Concomitant]

REACTIONS (1)
  - Menorrhagia [Recovered/Resolved]
